FAERS Safety Report 20800411 (Version 1)
Quarter: 2022Q2

REPORT INFORMATION
  Report Type: Other
  Country: US (occurrence: None)
  Receive Date: 20220509
  Receipt Date: 20220509
  Transmission Date: 20220721
  Serious: Yes (Death)
  Sender: FDA-Public Use
  Company Number: US-ROCHE-2673884

PATIENT
  Sex: Male

DRUGS (8)
  1. OCREVUS [Suspect]
     Active Substance: OCRELIZUMAB
     Indication: Relapsing-remitting multiple sclerosis
     Dosage: ORDERED- 04/NOV/2019?PRESCRIBED AS INFUSE 300MG DAY 1, THEN 300MG DAY 15 AND INFUSE 600MG Q 6 MO
     Route: 065
  2. OCREVUS [Suspect]
     Active Substance: OCRELIZUMAB
     Dosage: INFUSE 300 MG DAY 1, THEN 300 MG DAY 15
     Route: 065
  3. LISINOPRIL [Concomitant]
     Active Substance: LISINOPRIL
     Route: 048
     Dates: start: 20190117
  4. ATORVASTATIN CALCIUM [Concomitant]
     Active Substance: ATORVASTATIN CALCIUM
     Dosage: Q.H.S.
     Dates: start: 20190117
  5. FERROUS SULFATE [Concomitant]
     Active Substance: FERROUS SULFATE
     Route: 048
     Dates: start: 20181128
  6. CILOSTAZOL [Concomitant]
     Active Substance: CILOSTAZOL
     Route: 048
     Dates: start: 20181128
  7. ASPIRIN [Concomitant]
     Active Substance: ASPIRIN
     Dosage: LOW STRENGTH
     Route: 048
     Dates: start: 20181128
  8. PANTOPRAZOLE SODIUM [Concomitant]
     Active Substance: PANTOPRAZOLE SODIUM
     Route: 048
     Dates: start: 20181128

REACTIONS (1)
  - Death [Fatal]
